FAERS Safety Report 17768120 (Version 1)
Quarter: 2020Q2

REPORT INFORMATION
  Report Type: Spontaneous
  Country: US (occurrence: US)
  Receive Date: 20200511
  Receipt Date: 20200511
  Transmission Date: 20200714
  Serious: No
  Sender: FDA-Public Use
  Company Number: US-PERSON AND COVEY-2083685

PATIENT
  Sex: Female

DRUGS (1)
  1. SOLBAR ZINC SPF38 [Suspect]
     Active Substance: HOMOSALATE\OCTINOXATE\ZINC OXIDE
     Indication: DANDRUFF
     Route: 003

REACTIONS (1)
  - Rash [Unknown]
